FAERS Safety Report 19711259 (Version 1)
Quarter: 2021Q3

REPORT INFORMATION
  Report Type: Spontaneous
  Country: US (occurrence: US)
  Receive Date: 20210816
  Receipt Date: 20210816
  Transmission Date: 20211014
  Serious: Yes (Other)
  Sender: FDA-Public Use
  Company Number: US-NOVOPROD-836548

PATIENT
  Age: 70 Year
  Sex: Female

DRUGS (1)
  1. TRESIBA [Suspect]
     Active Substance: INSULIN DEGLUDEC
     Indication: DIABETES MELLITUS
     Dosage: 44 UNITS
     Route: 058

REACTIONS (4)
  - Hyperglycaemic unconsciousness [Recovering/Resolving]
  - Blood pressure diastolic decreased [Unknown]
  - Device failure [Unknown]
  - Drug dose omission by device [Not Recovered/Not Resolved]

NARRATIVE: CASE EVENT DATE: 20210803
